FAERS Safety Report 6033111-8 (Version None)
Quarter: 2009Q1

REPORT INFORMATION
  Report Type: 
  Country: None (occurrence: None)
  Receive Date: 20090109
  Receipt Date: 20090108
  Transmission Date: 20090719
  Serious: Yes (Hospitalization)
  Sender: FDA-Public Use
  Company Number: JP-BAYER-200910006BYL

PATIENT
  Age: 79 Year
  Sex: Female
  Weight: 47 kg

DRUGS (12)
  1. BAY43-9006 [Suspect]
     Indication: HEPATIC NEOPLASM MALIGNANT
     Dosage: TOTAL DAILY DOSE: 800 MG  UNIT DOSE: 200 MG
     Route: 048
     Dates: start: 20080610, end: 20081226
  2. URSO 250 [Concomitant]
     Indication: HEPATITIS C
     Route: 048
  3. PORTOLAC [Concomitant]
     Indication: HYPERAMMONAEMIA
     Route: 048
  4. LIVACT [Concomitant]
     Indication: HEPATIC CIRRHOSIS
     Route: 048
  5. ADALAT CC [Concomitant]
     Indication: HYPERTENSION
     Route: 048
  6. GASPORT [Concomitant]
     Indication: GASTRITIS PROPHYLAXIS
     Route: 048
  7. ALDACTONE [Concomitant]
     Indication: HYPERTENSION
     Route: 048
  8. NEO-MINOPHAGEN C [Concomitant]
     Indication: HEPATITIS C
     Dosage: TOTAL DAILY DOSE: 40 ML
     Route: 042
  9. KERATINAMIN [Concomitant]
     Indication: PALMAR-PLANTAR ERYTHRODYSAESTHESIA SYNDROME
     Route: 062
     Dates: start: 20080624
  10. TAURINE [Concomitant]
     Indication: MUSCLE SPASMS
     Dosage: TOTAL DAILY DOSE: 3.06 MG
     Route: 048
     Dates: start: 20080703
  11. LAC-B [Concomitant]
     Indication: DIARRHOEA
     Dosage: TOTAL DAILY DOSE: 3 MG
     Route: 048
     Dates: start: 20080708, end: 20081226
  12. ADSORBIN [Concomitant]
     Indication: DIARRHOEA
     Dosage: TOTAL DAILY DOSE: 3 MG
     Route: 048
     Dates: start: 20080708, end: 20081226

REACTIONS (1)
  - ASCITES [None]
